FAERS Safety Report 8195205 (Version 6)
Quarter: 2014Q1

REPORT INFORMATION
  Report Type: Report from Study
  Country: DE (occurrence: DE)
  Receive Date: 20111024
  Receipt Date: 20140103
  Transmission Date: 20141002
  Serious: Yes (Death, Life-Threatening, Hospitalization, Other)
  Sender: FDA-Public Use
  Company Number: DE-BRISTOL-MYERS SQUIBB COMPANY-16020018

PATIENT
  Age: 59 Year
  Sex: Female
  Weight: 54 kg

DRUGS (12)
  1. IPILIMUMAB [Suspect]
     Indication: MALIGNANT MELANOMA
     Dosage: 171 MG; INTERRUPTED:10AUG11. ALSO TOOK 162MG 02-02SEP11.?3MG/KG
     Route: 042
     Dates: start: 20110719, end: 20110902
  2. PREDNISOLONE [Suspect]
     Indication: DIARRHOEA
     Dosage: 14SEP-26SEP-150MG,60 MG 26SEP11 TO 29SEP11 150 MG IV 30SEP11 TO 11OCT11, 7.5MG 20JU-9SEP11,
     Route: 048
     Dates: start: 20110914, end: 20111011
  3. ASS [Suspect]
     Indication: PERIPHERAL ARTERIAL OCCLUSIVE DISEASE
     Route: 048
     Dates: start: 19960701, end: 20111006
  4. FRAGMIN [Suspect]
     Dosage: 5000 IE
     Route: 058
     Dates: start: 20110909, end: 20110927
  5. GEMCITABINE [Suspect]
  6. ARIXTRA [Concomitant]
     Indication: VENOUS THROMBOSIS
     Dosage: STOPPED ON 09SEP11; RESTARTED AT 2.5 MG ON 13-SEP-2011
     Route: 058
     Dates: start: 20110720, end: 20110926
  7. ZOPICLONE [Concomitant]
     Dates: start: 20110719
  8. PANTOZOL [Concomitant]
     Indication: PROPHYLAXIS
     Route: 048
     Dates: start: 20110907, end: 20110930
  9. SALOFALK [Concomitant]
     Indication: DIARRHOEA
     Dosage: 500MG 19SEP-11OCT11.
     Dates: start: 20110919, end: 20111011
  10. LACTOBACILLUS [Concomitant]
     Indication: DIARRHOEA
     Dosage: 1 DF= 120 TROPFEN
     Route: 048
     Dates: start: 20110901, end: 20110926
  11. METHYLPREDNISOLONE [Concomitant]
  12. ARIXTRA [Concomitant]
     Indication: VENOUS THROMBOSIS
     Dosage: 20JUL-09SEP11,7.5MG?13SEP-26SEP11,2.5MG
     Route: 058
     Dates: start: 20110720, end: 20110926

REACTIONS (8)
  - Malignant neoplasm progression [Fatal]
  - Cerebral haemorrhage [Fatal]
  - Respiratory failure [Fatal]
  - Colitis [Fatal]
  - Diarrhoea [Fatal]
  - Pancytopenia [Unknown]
  - Vascular occlusion [Recovered/Resolved with Sequelae]
  - Diarrhoea haemorrhagic [Unknown]
